FAERS Safety Report 7288763-1 (Version None)
Quarter: 2011Q1

REPORT INFORMATION
  Report Type: 
  Country: None (occurrence: None)
  Receive Date: 20110211
  Receipt Date: 20110206
  Transmission Date: 20110831
  Serious: Yes (Other)
  Sender: FDA-Public Use
  Company Number: US-PFIZER INC-2011026596

PATIENT
  Sex: Female
  Weight: 90.703 kg

DRUGS (4)
  1. PREPARATION H MAXIMUM STRENGTH [Suspect]
     Indication: BURNING SENSATION
     Dosage: 0.25%, UNK
     Route: 061
     Dates: start: 20110205
  2. PREPARATION H MAXIMUM STRENGTH [Suspect]
     Indication: PRURITUS
  3. ALEVE [Concomitant]
     Indication: PAIN
     Dosage: UNK
  4. TYLENOL-500 [Concomitant]
     Indication: PAIN
     Dosage: UNK

REACTIONS (3)
  - URTICARIA [None]
  - BLISTER [None]
  - ERYTHEMA [None]
